FAERS Safety Report 14774874 (Version 2)
Quarter: 2019Q2

REPORT INFORMATION
  Report Type: Spontaneous
  Country: US (occurrence: US)
  Receive Date: 20180418
  Receipt Date: 20190418
  Transmission Date: 20190711
  Serious: No
  Sender: FDA-Public Use
  Company Number: US-ASTELLAS-2018US011949

PATIENT

DRUGS (1)
  1. LEXISCAN [Suspect]
     Active Substance: REGADENOSON
     Indication: PRODUCT USED FOR UNKNOWN INDICATION
     Dosage: SINGLE BOLUS DOSE (0.4 MG/5ML), UNKNOWN FREQ.
     Route: 042

REACTIONS (2)
  - Circumstance or information capable of leading to medication error [Unknown]
  - Physical product label issue [Unknown]
